FAERS Safety Report 4595755-X (Version None)
Quarter: 2005Q1

REPORT INFORMATION
  Report Type: 
  Country: None (occurrence: None)
  Receive Date: 20050224
  Receipt Date: 20050216
  Transmission Date: 20050727
  Serious: Yes (Hospitalization)
  Sender: FDA-Public Use
  Company Number: T05-JPN-00272-01

PATIENT
  Age: 73 Year
  Sex: Male

DRUGS (7)
  1. MEMANTINE HCL [Suspect]
     Indication: DEMENTIA ALZHEIMER'S TYPE
     Dosage: 20 MG QD PO
     Route: 048
     Dates: start: 20040907
  2. MEMANTINE HCL [Suspect]
     Indication: DEMENTIA ALZHEIMER'S TYPE
     Dates: start: 20040810, end: 20040906
  3. OXYBUTYNIN HYDROCHLORIDE [Concomitant]
  4. CALCITRIOL [Concomitant]
  5. NAFTOPIDIL [Concomitant]
  6. AMLODIPINE BESYLATE [Concomitant]
  7. HOUCH-EKKI-TO [Concomitant]

REACTIONS (1)
  - SYNCOPE [None]
